FAERS Safety Report 5171656-3 (Version None)
Quarter: 2006Q4

REPORT INFORMATION
  Report Type: 
  Country: None (occurrence: None)
  Receive Date: 20061205
  Receipt Date: 20061121
  Transmission Date: 20070319
  Serious: Yes (Hospitalization, Other)
  Sender: FDA-Public Use
  Company Number: 2005118250

PATIENT
  Sex: Female

DRUGS (5)
  1. NEURONTIN [Suspect]
     Indication: DEPRESSION
     Dates: start: 20000701
  2. NEURONTIN [Suspect]
     Indication: PAIN
     Dates: start: 20000701
  3. EFFEXOR [Suspect]
  4. SKELAXIN [Suspect]
  5. BENZODIAZEPINE DERIVATIVES (BENZODIAZEPINE DERIVATIVES) [Suspect]

REACTIONS (12)
  - ACUTE RESPIRATORY FAILURE [None]
  - BIPOLAR I DISORDER [None]
  - DRUG INEFFECTIVE [None]
  - LETHARGY [None]
  - LEUKOCYTOSIS [None]
  - METABOLIC ENCEPHALOPATHY [None]
  - MULTIPLE DRUG OVERDOSE INTENTIONAL [None]
  - PERSONALITY DISORDER [None]
  - PNEUMONIA ASPIRATION [None]
  - PYREXIA [None]
  - STAPHYLOCOCCAL INFECTION [None]
  - SUICIDE ATTEMPT [None]
